FAERS Safety Report 5727927-2 (Version None)
Quarter: 2008Q2

REPORT INFORMATION
  Report Type: 
  Country: None (occurrence: None)
  Receive Date: 20080505
  Receipt Date: 20080424
  Transmission Date: 20081010
  Serious: Yes (Other)
  Sender: FDA-Public Use
  Company Number: FR-PFIZER INC-2008021864

PATIENT
  Sex: Male
  Weight: 70 kg

DRUGS (1)
  1. SU-011,248 [Suspect]
     Indication: THYROID CANCER METASTATIC

REACTIONS (1)
  - GASTROINTESTINAL PERFORATION [None]
